FAERS Safety Report 14260475 (Version 1)
Quarter: 2017Q4

REPORT INFORMATION
  Report Type: Spontaneous
  Country: US (occurrence: US)
  Receive Date: 20171207
  Receipt Date: 20171207
  Transmission Date: 20180321
  Serious: No
  Sender: FDA-Public Use
  Company Number: US-AMNEAL PHARMACEUTICALS-2017AMN01019

PATIENT
  Age: 66 Year
  Sex: Female
  Weight: 66.21 kg

DRUGS (6)
  1. LUNESTA GENERIC [Concomitant]
  2. AMITRIPTYLINE TABLETS [Concomitant]
  3. OMEGA-3-ACID ETHYL ESTERS. [Suspect]
     Active Substance: OMEGA-3-ACID ETHYL ESTERS
     Indication: BLOOD TRIGLYCERIDES INCREASED
     Dosage: UNK
     Dates: start: 201711, end: 201711
  4. OMEPRAZOLE CAPSULES [Concomitant]
     Active Substance: OMEPRAZOLE
     Dosage: UNK
  5. HCTZ/TRIAMTERENE [Concomitant]
  6. CLIMARA PRO PATCH [Concomitant]

REACTIONS (3)
  - Product odour abnormal [Recovered/Resolved]
  - Abdominal discomfort [Recovered/Resolved]
  - Burning sensation [Recovered/Resolved]

NARRATIVE: CASE EVENT DATE: 201711
